FAERS Safety Report 15237692 (Version 1)
Quarter: 2018Q3

REPORT INFORMATION
  Report Type: Spontaneous
  Country: JP (occurrence: JP)
  Receive Date: 20180803
  Receipt Date: 20180803
  Transmission Date: 20181010
  Serious: Yes (Death, Other)
  Sender: FDA-Public Use
  Company Number: JP-JNJFOC-20180800453

PATIENT

DRUGS (1)
  1. XARELTO [Suspect]
     Active Substance: RIVAROXABAN
     Indication: ATRIAL FIBRILLATION
     Route: 048

REACTIONS (13)
  - Subarachnoid haemorrhage [Unknown]
  - Gastric ulcer haemorrhage [Unknown]
  - Cerebral infarction [Unknown]
  - Cardiac failure [Unknown]
  - Haematuria [Unknown]
  - Neoplasm malignant [Fatal]
  - Haemorrhoidal haemorrhage [Unknown]
  - Diverticulum intestinal haemorrhagic [Unknown]
  - Epistaxis [Unknown]
  - Subdural haematoma [Unknown]
  - Cardiac failure congestive [Fatal]
  - Haemorrhage [Unknown]
  - Sudden death [Fatal]
